FAERS Safety Report 6684186-4 (Version None)
Quarter: 2010Q2

REPORT INFORMATION
  Report Type: 
  Country: None (occurrence: None)
  Receive Date: 20100416
  Receipt Date: 20100406
  Transmission Date: 20101027
  Serious: Yes (Death, Other)
  Sender: FDA-Public Use
  Company Number: US-PFIZER INC-2009260568

PATIENT
  Sex: Male
  Weight: 89 kg

DRUGS (6)
  1. LYRICA [Suspect]
     Indication: DIABETIC NEUROPATHY
     Dosage: 75 MG, 3X/DAY
     Dates: start: 20080101
  2. HUMALOG [Concomitant]
     Indication: DIABETES MELLITUS
     Dosage: UNK
  3. LISINOPRIL [Concomitant]
     Dosage: UNK
  4. AMITRIPTYLINE [Concomitant]
     Dosage: UNK
  5. TRAMADOL [Concomitant]
     Dosage: UNK
  6. GEMFIBROZIL [Concomitant]
     Dosage: UNK

REACTIONS (6)
  - BALANCE DISORDER [None]
  - DEATH [None]
  - DIZZINESS [None]
  - EPISTAXIS [None]
  - IRRITABILITY [None]
  - VERTIGO [None]
